FAERS Safety Report 21868625 (Version 1)
Quarter: 2023Q1

REPORT INFORMATION
  Report Type: Spontaneous
  Country: US (occurrence: US)
  Receive Date: 20230117
  Receipt Date: 20230117
  Transmission Date: 20230417
  Serious: No
  Sender: FDA-Public Use
  Company Number: US-GLAXOSMITHKLINE-USCH2023AMR002220

PATIENT

DRUGS (1)
  1. DIETARY SUPPLEMENT\PROBIOTICS [Suspect]
     Active Substance: DIETARY SUPPLEMENT\PROBIOTICS
     Indication: Product used for unknown indication
     Dosage: UNK

REACTIONS (5)
  - Abdominal distension [Unknown]
  - Gastrointestinal pain [Unknown]
  - Agitation [Unknown]
  - Anxiety [Unknown]
  - Abdominal discomfort [Unknown]
